FAERS Safety Report 10047804 (Version 1)
Quarter: 2014Q1

REPORT INFORMATION
  Report Type: Spontaneous
  Country: US (occurrence: None)
  Receive Date: 20140306
  Receipt Date: 20140306
  Transmission Date: 20141002
  Serious: Yes (Hospitalization)
  Sender: FDA-Public Use
  Company Number: 163-21880-13070921

PATIENT
  Age: 73 Year
  Sex: Female

DRUGS (9)
  1. REVLIMID (LENALIDOMIDE) (5 MILLIGRAM, CAPSULES) [Suspect]
     Indication: PLASMA CELL MYELOMA
     Dosage: 5 MG, 21 IN 21 D, PO
     Route: 048
     Dates: start: 20130207
  2. ASA (ACETYLSALICYLIC ACID) [Concomitant]
  3. COUMADIN (WARFARIN SODIUM) [Concomitant]
  4. DEXAMETHASONE (DEXAMETHASONE) [Concomitant]
  5. METOPROLOL TARTRATE (METOPROLOL TARTRATE) [Concomitant]
  6. NEPHROVITE (NEPHROVITE) [Concomitant]
  7. PREDNISONE (PREDNISONE) [Concomitant]
  8. RENVELA (SEVELAMER CARBONATE) [Concomitant]
  9. TRAMADOL HCL (TRAMADOL HYDROCHLORIDE) [Concomitant]

REACTIONS (1)
  - Thrombosis [None]
